FAERS Safety Report 9254441 (Version 6)
Quarter: 2013Q3

REPORT INFORMATION
  Report Type: Spontaneous
  Country: US (occurrence: US)
  Receive Date: 20130425
  Receipt Date: 20130702
  Transmission Date: 20140515
  Serious: Yes (Other)
  Sender: FDA-Public Use
  Company Number: US-009507513-1204USA00471

PATIENT
  Sex: Female

DRUGS (2)
  1. FOSAMAX [Suspect]
     Indication: OSTEOPOROSIS
     Dosage: 10 MG, QD
     Route: 048
     Dates: start: 199908, end: 200110
  2. FOSAMAX [Suspect]
     Indication: OSTEOPENIA
     Dosage: 70 MG, UNK
     Route: 048
     Dates: end: 201003

REACTIONS (17)
  - Femur fracture [Recovered/Resolved]
  - Intramedullary rod insertion [Unknown]
  - Bone graft [Unknown]
  - Hip arthroplasty [Unknown]
  - Breast cancer [Unknown]
  - Surgery [Unknown]
  - Diabetes mellitus [Unknown]
  - Adverse event [Unknown]
  - Adverse event [Unknown]
  - Hypercholesterolaemia [Unknown]
  - Bursitis [Unknown]
  - Breast lump removal [Unknown]
  - Medical device removal [Unknown]
  - Impaired healing [Recovered/Resolved]
  - Bursa removal [Unknown]
  - Wrist fracture [Unknown]
  - Blood calcium increased [Unknown]
